FAERS Safety Report 16093771 (Version 1)
Quarter: 2019Q1

REPORT INFORMATION
  Report Type: Spontaneous
  Country: US (occurrence: US)
  Receive Date: 20190320
  Receipt Date: 20190320
  Transmission Date: 20190418
  Serious: Yes (Hospitalization, Other)
  Sender: FDA-Public Use
  Company Number: US-ACCORD-114225

PATIENT
  Age: 48 Year
  Sex: Female

DRUGS (7)
  1. CYCLOBENZAPRINE. [Concomitant]
     Active Substance: CYCLOBENZAPRINE
     Indication: PAIN
  2. TETRAHYDROCANNABINOL/CANNABIDIOL [Interacting]
     Active Substance: DRONABINOL
     Indication: PAIN
     Dosage: 2-4 LOZENGES
  3. ZOLPIDEM [Concomitant]
     Active Substance: ZOLPIDEM\ZOLPIDEM TARTRATE
     Indication: INSOMNIA
  4. HYDROMORPHONE/HYDROMORPHONE HYDROCHLORIDE [Concomitant]
     Indication: ANALGESIC THERAPY
  5. TACROLIMUS. [Suspect]
     Active Substance: TACROLIMUS
     Indication: IMMUNOSUPPRESSION
  6. MYCOPHENOLATE MOFETIL/MYCOPHENOLATE SODIUM/MYCOPHENOLIC ACID [Concomitant]
     Indication: IMMUNOSUPPRESSANT DRUG THERAPY
  7. BASILIXIMAB [Concomitant]
     Active Substance: BASILIXIMAB
     Indication: IMMUNOSUPPRESSANT DRUG THERAPY

REACTIONS (4)
  - Drug level increased [Recovered/Resolved]
  - Encephalopathy [Recovering/Resolving]
  - Drug interaction [Unknown]
  - Toxicity to various agents [None]
